FAERS Safety Report 13085027 (Version 3)
Quarter: 2017Q1

REPORT INFORMATION
  Report Type: Spontaneous
  Country: US (occurrence: US)
  Receive Date: 20170104
  Receipt Date: 20170311
  Transmission Date: 20170428
  Serious: No
  Sender: FDA-Public Use
  Company Number: US-TEVA-725226USA

PATIENT
  Sex: Female

DRUGS (1)
  1. CAMRESE [Suspect]
     Active Substance: ETHINYL ESTRADIOL\LEVONORGESTREL
     Dosage: 0.15 MG / 0.03 MG / 0.01 MG

REACTIONS (5)
  - Frequent bowel movements [Recovered/Resolved]
  - Abdominal pain lower [Recovered/Resolved]
  - Product substitution issue [Unknown]
  - Gastrointestinal disorder [Recovered/Resolved]
  - Vaginal haemorrhage [Unknown]

NARRATIVE: CASE EVENT DATE: 201605
